FAERS Safety Report 5921326-6 (Version None)
Quarter: 2008Q4

REPORT INFORMATION
  Report Type: 
  Country: None (occurrence: None)
  Receive Date: 20081016
  Receipt Date: 20081002
  Transmission Date: 20090506
  Serious: Yes (Hospitalization)
  Sender: FDA-Public Use
  Company Number: AU-MERCK-0810AUS00010

PATIENT
  Age: 60 Year
  Sex: Male

DRUGS (4)
  1. PRINIVIL [Suspect]
     Indication: HYPERTENSION
     Route: 048
     Dates: start: 20000101
  2. LITHIUM CARBONATE [Suspect]
     Indication: BIPOLAR DISORDER
     Route: 048
     Dates: start: 19880101, end: 20000101
  3. LITHIUM CARBONATE [Suspect]
     Route: 048
     Dates: start: 20000101, end: 20070101
  4. LITHIUM CARBONATE [Suspect]
     Route: 048
     Dates: start: 20070101

REACTIONS (8)
  - ADVERSE EVENT [None]
  - ANAEMIA [None]
  - BIPOLAR DISORDER [None]
  - BLOOD CREATININE INCREASED [None]
  - DRUG INTERACTION [None]
  - HEPATIC ENZYME INCREASED [None]
  - NEUTROPENIA [None]
  - THERAPEUTIC AGENT TOXICITY [None]
